FAERS Safety Report 17669952 (Version 5)
Quarter: 2020Q4

REPORT INFORMATION
  Report Type: Spontaneous
  Country: US (occurrence: US)
  Receive Date: 20200415
  Receipt Date: 20201104
  Transmission Date: 20210113
  Serious: Yes (Hospitalization, Other)
  Sender: FDA-Public Use
  Company Number: US-PFIZER INC-2019470571

PATIENT
  Age: 48 Year
  Sex: Female

DRUGS (2)
  1. PLAQUENIL [Concomitant]
     Active Substance: HYDROXYCHLOROQUINE SULFATE
     Dosage: UNK
  2. XELJANZ [Suspect]
     Active Substance: TOFACITINIB CITRATE
     Indication: RHEUMATOID ARTHRITIS
     Dosage: 5 MG, 2X/DAY
     Route: 048
     Dates: start: 20190920

REACTIONS (6)
  - Nerve compression [Unknown]
  - Intervertebral disc degeneration [Unknown]
  - Sepsis [Unknown]
  - Restlessness [Unknown]
  - Therapeutic response unexpected [Unknown]
  - Migraine [Unknown]

NARRATIVE: CASE EVENT DATE: 20200922
